FAERS Safety Report 8551747-7 (Version None)
Quarter: 2012Q3

REPORT INFORMATION
  Report Type: 
  Country: None (occurrence: None)
  Receive Date: 20120730
  Receipt Date: 20120725
  Transmission Date: 20120928
  Serious: Yes (Death, Other)
  Sender: FDA-Public Use
  Company Number: US-CELGENEUS-163-21880-12032402

PATIENT
  Sex: Male

DRUGS (14)
  1. MULTI-VITAMINS [Concomitant]
     Route: 048
  2. VITAMIN B-12 [Concomitant]
     Dosage: 1000
     Route: 048
  3. REVLIMID [Suspect]
  4. REVLIMID [Suspect]
     Dosage: 10 MILLIGRAM
     Route: 048
     Dates: start: 20120229, end: 20120308
  5. IRON [Concomitant]
     Dosage: 18 MILLIGRAM
     Route: 048
  6. VITAMIN D [Concomitant]
     Dosage: 1000 UNITS
     Route: 048
  7. ALLOPURINOL [Concomitant]
     Dosage: 100 MILLIGRAM
     Route: 048
  8. ASCORBIC ACID [Concomitant]
     Dosage: 500 MILLIGRAM
     Route: 048
  9. ASPIRIN [Concomitant]
     Dosage: 81 MILLIGRAM
     Route: 048
  10. GEMFIBROZIL [Concomitant]
     Dosage: 600 MILLIGRAM
     Route: 048
  11. PRILOSEC [Concomitant]
     Dosage: 10MG-20MG
     Route: 048
  12. HYDROCODONE BITARTRATE AND ACETAMINOPHEN [Concomitant]
     Dosage: 5-325MG
     Route: 048
  13. COZAAR [Concomitant]
     Dosage: 100 MILLIGRAM
     Route: 048
  14. FOLIC ACID [Concomitant]
     Dosage: 20 MILLIGRAM
     Route: 048

REACTIONS (1)
  - SEPSIS [None]
